FAERS Safety Report 8772024 (Version 3)
Quarter: 2013Q2

REPORT INFORMATION
  Report Type: Spontaneous
  Country: BR (occurrence: BR)
  Receive Date: 20120905
  Receipt Date: 20130416
  Transmission Date: 20140414
  Serious: Yes (Death, Hospitalization, Other)
  Sender: FDA-Public Use
  Company Number: PHHY2012BR076200

PATIENT
  Age: 90 Year
  Sex: Male

DRUGS (3)
  1. DIOVAN TRIPLE [Suspect]
     Indication: BLOOD PRESSURE INCREASED
     Dosage: 1 DF(VALS 160 MG, AMLO 5 MG, HYDR 12.5 MG), QD
  2. DIOVAN HCT [Suspect]
     Indication: HYPERTENSION
     Dosage: 1 DF (VALS 160 MG, HYDR 25 MG), QD
  3. DIOVAN HCT [Suspect]
     Dosage: 1 DF, BID (VALS 160 MG, HYDR 25 MG) 1 TABLET IN THE MORNING AND 1 TABLET AT NIGHT

REACTIONS (5)
  - Infarction [Fatal]
  - Pneumonia aspiration [Fatal]
  - Renal disorder [Fatal]
  - Pneumonia [Recovered/Resolved]
  - Local swelling [Recovering/Resolving]
